FAERS Safety Report 9255608 (Version 3)
Quarter: 2013Q2

REPORT INFORMATION
  Report Type: Spontaneous
  Country: IT (occurrence: IT)
  Receive Date: 20130425
  Receipt Date: 20130604
  Transmission Date: 20140414
  Serious: Yes (Other)
  Sender: FDA-Public Use
  Company Number: IT-BRISTOL-MYERS SQUIBB COMPANY-18797308

PATIENT
  Age: 69 Year
  Sex: Female

DRUGS (12)
  1. ORENCIA FOR INJ 250 MG/VIAL [Suspect]
     Indication: RHEUMATOID ARTHRITIS
     Route: 042
     Dates: start: 20110329, end: 20130213
  2. METHOTREXATE [Suspect]
     Indication: RHEUMATOID ARTHRITIS
     Route: 030
     Dates: start: 20020927, end: 20130415
  3. ALENDRONATE SODIUM [Concomitant]
     Dosage: TABS, SINCE 4 YRS
     Route: 048
     Dates: start: 2009
  4. CALCIUM CARBONATE + CHOLECALCIFEROL [Concomitant]
     Dosage: 1DF= 1 UNIT?TABS, SINCE 4 YRS.
     Route: 048
     Dates: start: 2009
  5. ANTRA [Concomitant]
     Indication: PROPHYLAXIS AGAINST GASTROINTESTINAL ULCER
     Dosage: 220 MG CAPS, SINCE 4 YRS.
     Route: 048
     Dates: start: 2009
  6. CRESTOR [Concomitant]
     Indication: DYSLIPIDAEMIA
     Dosage: TABS, SINCE 2 YRS.
     Route: 048
     Dates: start: 201107
  7. AIRTAL [Concomitant]
     Indication: ANALGESIC THERAPY
     Dosage: 1 UNIT
     Route: 048
     Dates: start: 2011
  8. ZYLORIC [Concomitant]
     Dosage: TABS, SINCE 2 YRS.
     Route: 048
     Dates: start: 2011
  9. GLUCOPHAGE XR TABS 500 MG [Concomitant]
     Indication: TYPE 2 DIABETES MELLITUS
     Dosage: SINCE 2 YRS.
     Route: 048
     Dates: start: 2011
  10. CARDIOASPIRIN [Concomitant]
     Dosage: TABS, SINCE 9 YRS.
     Route: 048
     Dates: start: 2004
  11. NORVASC [Concomitant]
     Indication: HYPERTENSION
     Dosage: 5 MG TABS, SINCE 2 YRS
     Route: 048
     Dates: start: 2011
  12. VASORETIC [Concomitant]
     Indication: HYPERTENSION
     Dosage: 1DF= 20+12.5 MG TABS, SINCE 8 YRS.
     Route: 048
     Dates: start: 2005

REACTIONS (1)
  - Pericarditis [Recovered/Resolved]
